FAERS Safety Report 15114503 (Version 1)
Quarter: 2018Q3

REPORT INFORMATION
  Report Type: Spontaneous
  Country: US (occurrence: US)
  Receive Date: 20180706
  Receipt Date: 20180706
  Transmission Date: 20181010
  Serious: No
  Sender: FDA-Public Use
  Company Number: US-ACORDA-ACO_149778_2018

PATIENT
  Age: 30 Year
  Sex: Female
  Weight: 47.62 kg

DRUGS (2)
  1. QUTENZA [Suspect]
     Active Substance: CAPSAICIN
     Indication: ERYTHROMELALGIA
  2. QUTENZA [Suspect]
     Active Substance: CAPSAICIN
     Indication: PAIN
     Dosage: UNK
     Route: 061
     Dates: start: 20180501, end: 20180501

REACTIONS (5)
  - Application site pain [Recovered/Resolved]
  - Off label use [Unknown]
  - Application site erythema [Unknown]
  - Pain [Recovered/Resolved]
  - Application site rash [Recovered/Resolved]

NARRATIVE: CASE EVENT DATE: 20180502
